FAERS Safety Report 7797115-7 (Version None)
Quarter: 2011Q4

REPORT INFORMATION
  Report Type: 
  Country: None (occurrence: None)
  Receive Date: 20111003
  Receipt Date: 20110922
  Transmission Date: 20120403
  Serious: Yes (Other)
  Sender: FDA-Public Use
  Company Number: LEO-2011-00782

PATIENT
  Age: 40 Year
  Sex: Male

DRUGS (1)
  1. INNOHEP [Suspect]
     Indication: THROMBOSIS PROPHYLAXIS
     Dosage: 4500 IU, SUBCUTANEOUS
     Route: 058
     Dates: start: 20110905

REACTIONS (2)
  - OFF LABEL USE [None]
  - THROMBOCYTOSIS [None]
